FAERS Safety Report 6603281-9 (Version None)
Quarter: 2010Q1

REPORT INFORMATION
  Report Type: 
  Country: None (occurrence: None)
  Receive Date: 20100218
  Receipt Date: 20100205
  Transmission Date: 20100710
  Serious: Yes (Other)
  Sender: FDA-Public Use
  Company Number: 8029277

PATIENT
  Sex: Female

DRUGS (2)
  1. KEPPRA [Suspect]
     Indication: COMPLEX PARTIAL SEIZURES
     Dosage: VERY LOW DOSE, 250 MG BID, 500 MG BID, 250 MG BID
  2. KEPPRA [Suspect]
     Indication: COMPLEX PARTIAL SEIZURES
     Dosage: VERY LOW DOSE, 250 MG BID, 500 MG BID, 250 MG BID
     Dates: start: 20060101

REACTIONS (7)
  - ANTEPARTUM HAEMORRHAGE [None]
  - CAESAREAN SECTION [None]
  - DRUG EXPOSURE DURING PREGNANCY [None]
  - MATERNAL USE OF ILLICIT DRUGS [None]
  - PARTIAL SEIZURES [None]
  - PROCEDURAL COMPLICATION [None]
  - UTERINE RUPTURE [None]
